FAERS Safety Report 20717578 (Version 1)
Quarter: 2022Q2

REPORT INFORMATION
  Report Type: Spontaneous
  Country: US (occurrence: US)
  Receive Date: 20220417
  Receipt Date: 20220417
  Transmission Date: 20220720
  Serious: No
  Sender: FDA-Public Use
  Company Number: US-TEVA-2022-US-2020327

PATIENT
  Sex: Female

DRUGS (1)
  1. AJOVY [Suspect]
     Active Substance: FREMANEZUMAB-VFRM
     Dosage: STRENGTH: 225 MG/1.5 ML
     Route: 058

REACTIONS (3)
  - Needle issue [Unknown]
  - Incorrect dose administered by device [Unknown]
  - Injection site extravasation [Unknown]
